FAERS Safety Report 4750966-5 (Version None)
Quarter: 2005Q3

REPORT INFORMATION
  Report Type: 
  Country: None (occurrence: None)
  Receive Date: 20050824
  Receipt Date: 20050816
  Transmission Date: 20060218
  Serious: Yes (Other)
  Sender: FDA-Public Use
  Company Number: 200516255US

PATIENT
  Sex: Female
  Weight: 79.5 kg

DRUGS (2)
  1. KETEK [Suspect]
     Indication: SINUSITIS
     Dosage: DOSE: 1 TAB
     Route: 048
     Dates: start: 20050713, end: 20050717
  2. SERUMLIPIDREDUCING AGENTS [Concomitant]
     Dosage: DOSE: UNK

REACTIONS (3)
  - DIPLOPIA [None]
  - VISION BLURRED [None]
  - VITH NERVE PARALYSIS [None]
